FAERS Safety Report 9809427 (Version 1)
Quarter: 2014Q1

REPORT INFORMATION
  Report Type: Spontaneous
  Country: US (occurrence: US)
  Receive Date: 20140110
  Receipt Date: 20140110
  Transmission Date: 20141002
  Serious: No
  Sender: FDA-Public Use
  Company Number: US-PFIZER INC-2014004209

PATIENT
  Age: 64 Year
  Sex: Male
  Weight: 81.63 kg

DRUGS (7)
  1. FLUCONAZOLE [Suspect]
     Indication: CRYPTOCOCCOSIS
     Dosage: 400 MG, DAILY
     Route: 048
     Dates: start: 2013
  2. FLUCONAZOLE [Suspect]
     Indication: LUNG INFECTION
  3. L-THYROXIN [Concomitant]
     Indication: HYPOTHYROIDISM
     Dosage: 0.75 UG, DAILY
  4. ACYCLOVIR [Concomitant]
     Indication: STEM CELL TRANSPLANT
     Dosage: 200 MG, DAILY
  5. FLOMAX [Concomitant]
     Indication: BENIGN PROSTATIC HYPERPLASIA
     Dosage: 0.4 MG, DAILY
  6. PROTONIX [Concomitant]
     Indication: OESOPHAGEAL IRRITATION
     Dosage: 40 MG, DAILY
  7. VITAMIN D [Concomitant]
     Dosage: 2000 IU, UNK

REACTIONS (3)
  - Blood cholesterol increased [Not Recovered/Not Resolved]
  - Weight decreased [Unknown]
  - Blood triglycerides increased [Not Recovered/Not Resolved]
